FAERS Safety Report 5510738-0 (Version None)
Quarter: 2007Q4

REPORT INFORMATION
  Report Type: 
  Country: None (occurrence: None)
  Receive Date: 20071108
  Receipt Date: 20071102
  Transmission Date: 20080405
  Serious: Yes (Other)
  Sender: FDA-Public Use
  Company Number: A0693061A

PATIENT
  Age: 39 Year
  Sex: Female

DRUGS (1)
  1. WELLBUTRIN [Suspect]
     Dosage: 300MG UNKNOWN
     Route: 065
     Dates: start: 20070601

REACTIONS (7)
  - APATHY [None]
  - ASTHENIA [None]
  - ATTENTION DEFICIT/HYPERACTIVITY DISORDER [None]
  - EMOTIONAL DISTRESS [None]
  - FEAR [None]
  - FEELING ABNORMAL [None]
  - SUICIDAL IDEATION [None]
